FAERS Safety Report 8030579-2 (Version None)
Quarter: 2012Q1

REPORT INFORMATION
  Report Type: 
  Country: None (occurrence: None)
  Receive Date: 20120109
  Receipt Date: 20120103
  Transmission Date: 20120608
  Serious: Yes (Hospitalization, Other)
  Sender: FDA-Public Use
  Company Number: US-BAYER-200940293NA

PATIENT
  Age: 58 Year
  Sex: Female
  Weight: 58.957 kg

DRUGS (14)
  1. TRASYLOL [Suspect]
     Indication: CARDIAC OPERATION
     Dosage: LOADING DOSE: 200ML FOLLOWED BY 50ML/HR
  2. PROTAMINE SULFATE [Concomitant]
     Dosage: UNK
     Dates: start: 20060525
  3. PRILOSEC [Concomitant]
     Dosage: 20 UNK, UNK
     Route: 048
  4. LOPRESSOR [Concomitant]
     Dosage: 100 MG, BID
  5. PREDNISONE TAB [Concomitant]
     Dosage: 5 MG, QD
     Route: 048
  6. ELAVIL [Concomitant]
     Dosage: 25 MG, QD
     Route: 048
  7. TRASYLOL [Suspect]
     Indication: MITRAL VALVE REPAIR
     Dosage: TEST DOSE 1ML
     Route: 042
     Dates: start: 20060525
  8. ACETYLSALICYLIC ACID SRT [Concomitant]
     Dosage: 81 MG, QD
  9. MOTRIN [Concomitant]
     Dosage: 800 MG, TID
     Route: 048
  10. TYLENOL W/ CODEINE NO. 3 [Concomitant]
  11. PROTAMINE SULFATE [Concomitant]
     Dosage: UNK
     Dates: start: 20060525
  12. INSULIN [Concomitant]
     Dosage: UNK
     Dates: start: 20060525
  13. HEPARIN [Concomitant]
     Dosage: UNK
     Dates: start: 20060525
  14. AMIODARONE HCL [Concomitant]
     Dosage: 200 MG, BID
     Route: 048

REACTIONS (12)
  - STRESS [None]
  - PAIN [None]
  - PSYCHOLOGICAL TRAUMA [None]
  - RENAL FAILURE [None]
  - UNEVALUABLE EVENT [None]
  - FEAR [None]
  - RENAL INJURY [None]
  - ANXIETY [None]
  - ANHEDONIA [None]
  - EMOTIONAL DISTRESS [None]
  - RENAL IMPAIRMENT [None]
  - INJURY [None]
